FAERS Safety Report 12842529 (Version 2)
Quarter: 2016Q4

REPORT INFORMATION
  Report Type: Report from Study
  Country: IT (occurrence: IT)
  Receive Date: 20161013
  Receipt Date: 20161018
  Transmission Date: 20170207
  Serious: Yes (Other)
  Sender: FDA-Public Use
  Company Number: IT-ACCORD-044753

PATIENT
  Age: 34 Year
  Sex: Female

DRUGS (2)
  1. TOPIRAMATE. [Suspect]
     Active Substance: TOPIRAMATE
     Indication: HEADACHE
     Route: 048
     Dates: start: 20160930, end: 20161002
  2. LAROXYL [Concomitant]
     Active Substance: AMITRIPTYLINE
     Dosage: STRENGTH 40 MG/ML

REACTIONS (2)
  - Vision blurred [Unknown]
  - Visual acuity reduced [Unknown]

NARRATIVE: CASE EVENT DATE: 20161001
